FAERS Safety Report 7327265-0 (Version None)
Quarter: 2011Q1

REPORT INFORMATION
  Report Type: 
  Country: None (occurrence: None)
  Receive Date: 20110302
  Receipt Date: 20110216
  Transmission Date: 20110831
  Serious: Yes (Hospitalization, Other)
  Sender: FDA-Public Use
  Company Number: FR-PFIZER INC-2011022113

PATIENT
  Age: 28 Year
  Sex: Female

DRUGS (2)
  1. ISOTRETINOIN [Concomitant]
     Indication: ACNE
     Dosage: UNK
     Route: 065
     Dates: start: 20080701, end: 20081222
  2. NORDETTE-21 [Suspect]
     Indication: ORAL CONTRACEPTION
     Dosage: 1 DF, 1X/DAY
     Route: 048
     Dates: start: 20080101, end: 20090306

REACTIONS (1)
  - CYTOLYTIC HEPATITIS [None]
